FAERS Safety Report 19488755 (Version 2)
Quarter: 2021Q3

REPORT INFORMATION
  Report Type: Report from Study
  Country: PH (occurrence: PH)
  Receive Date: 20210702
  Receipt Date: 20210720
  Transmission Date: 20211014
  Serious: Yes (Death)
  Sender: FDA-Public Use
  Company Number: PH-PFIZER INC-2021791602

PATIENT
  Age: 32 Year
  Sex: Female
  Weight: 50 kg

DRUGS (1)
  1. BOSUTINIB [Suspect]
     Active Substance: BOSUTINIB
     Indication: CHRONIC MYELOID LEUKAEMIA
     Dosage: 500 MG (5 X 100MG TABLETS)
     Dates: start: 20201120

REACTIONS (1)
  - Death [Fatal]
